FAERS Safety Report 13618991 (Version 1)
Quarter: 2017Q2

REPORT INFORMATION
  Report Type: Spontaneous
  Country: US (occurrence: US)
  Receive Date: 20170606
  Receipt Date: 20170606
  Transmission Date: 20170830
  Serious: No
  Sender: FDA-Public Use
  Company Number: US-AMGEN-USASP2017058066

PATIENT
  Sex: Male

DRUGS (1)
  1. EPOGEN [Suspect]
     Active Substance: ERYTHROPOIETIN
     Indication: NEPHROGENIC ANAEMIA
     Dosage: HUGE DOSES UPTO 20,000 UNITS OR IN EXCESS OF 20,000 UNITS, 3 TIMES/WK
     Route: 042

REACTIONS (1)
  - Off label use [Unknown]
